FAERS Safety Report 16439640 (Version 1)
Quarter: 2019Q3

REPORT INFORMATION
  Report Type: Spontaneous
  Country: US (occurrence: US)
  Receive Date: 20190614
  Receipt Date: 20190614
  Transmission Date: 20191004
  Serious: No
  Sender: FDA-Public Use
  Company Number: None

PATIENT
  Age: 48 Year
  Sex: Female
  Weight: 51.3 kg

DRUGS (1)
  1. CEPHALEXIN 500MG CAPSULES MFG TEVA - GENERIC FOR KEFLEX 500MG CAPSULES [Suspect]
     Active Substance: CEPHALEXIN
     Indication: SINUSITIS
     Dosage: ?          QUANTITY:1 CAPSULE(S);?
     Route: 048
     Dates: start: 20190609, end: 20190613

REACTIONS (7)
  - Flatulence [None]
  - Insomnia [None]
  - Abdominal pain [None]
  - Vaginal haemorrhage [None]
  - Eructation [None]
  - Headache [None]
  - Nausea [None]

NARRATIVE: CASE EVENT DATE: 20190612
